FAERS Safety Report 8318129-4 (Version None)
Quarter: 2012Q2

REPORT INFORMATION
  Report Type: 
  Country: None (occurrence: None)
  Receive Date: 20120427
  Receipt Date: 20120423
  Transmission Date: 20120825
  Serious: Yes (Other)
  Sender: FDA-Public Use
  Company Number: JP-PFIZER INC-2012101255

PATIENT
  Age: 60 Year

DRUGS (1)
  1. CELEBREX [Suspect]
     Dosage: 100 MG
     Route: 048
     Dates: start: 20091001

REACTIONS (2)
  - BREAST HAEMORRHAGE [None]
  - BREAST DISCHARGE [None]
